FAERS Safety Report 13576301 (Version 1)
Quarter: 2017Q2

REPORT INFORMATION
  Report Type: Spontaneous
  Country: US (occurrence: US)
  Receive Date: 20170524
  Receipt Date: 20170524
  Transmission Date: 20170830
  Serious: Yes (Hospitalization)
  Sender: FDA-Public Use
  Company Number: US-MALLINCKRODT-T201702172

PATIENT
  Age: 20 Year
  Sex: Male

DRUGS (8)
  1. MIRALAX [Concomitant]
     Active Substance: POLYETHYLENE GLYCOL 3350
  2. OXYCODONE [Concomitant]
     Active Substance: OXYCODONE
  3. MAGNESIUM [Concomitant]
     Active Substance: MAGNESIUM
  4. GABLOFEN [Suspect]
     Active Substance: BACLOFEN
     Indication: MUSCLE SPASTICITY
     Dosage: 274.9 ?G, QD
     Route: 037
  5. BENZONATATE. [Concomitant]
     Active Substance: BENZONATATE
  6. LORATADINE. [Concomitant]
     Active Substance: LORATADINE
  7. IBUPROFEN. [Concomitant]
     Active Substance: IBUPROFEN
  8. TRAZODONE [Concomitant]
     Active Substance: TRAZODONE HYDROCHLORIDE

REACTIONS (3)
  - Staphylococcal infection [Recovered/Resolved]
  - Implant site infection [Recovered/Resolved]
  - Sinusitis [Unknown]

NARRATIVE: CASE EVENT DATE: 20160623
